FAERS Safety Report 5343802-X (Version None)
Quarter: 2007Q2

REPORT INFORMATION
  Report Type: 
  Country: None (occurrence: None)
  Receive Date: 20070416
  Receipt Date: 20070212
  Transmission Date: 20071010
  Serious: No
  Sender: FDA-Public Use
  Company Number: 2007SP000476

PATIENT
  Age: 80 Year
  Sex: Male
  Weight: 99.7913 kg

DRUGS (4)
  1. LUNESTA [Suspect]
     Indication: INSOMNIA
     Dosage: 3MG, HS; ORAL
     Route: 048
     Dates: start: 20060101
  2. ANTIHYPERTENSIVES [Concomitant]
  3. BETA BLOCKING AGENTS [Concomitant]
  4. DIABETIC MEDICATIONS NOS [Concomitant]

REACTIONS (2)
  - DRUG EFFECT DECREASED [None]
  - SOMNOLENCE [None]
